FAERS Safety Report 24235352 (Version 4)
Quarter: 2024Q3

REPORT INFORMATION
  Report Type: Report from Study
  Country: CA (occurrence: CA)
  Receive Date: 20240821
  Receipt Date: 20240917
  Transmission Date: 20241016
  Serious: Yes (Hospitalization, Other)
  Sender: NOVARTIS
  Company Number: CA-002147023-NVSC2024CA058229

PATIENT
  Age: 83 Year
  Sex: Female

DRUGS (5)
  1. KISQALI [Suspect]
     Active Substance: RIBOCICLIB
     Indication: Breast cancer metastatic
     Dosage: 600 MG (TOOK 3 PILLS) TOGETHER THIS MORNING WITH WATER AND THEN HAD HER BREAKFAST
     Route: 048
     Dates: start: 20240314
  2. KISQALI [Suspect]
     Active Substance: RIBOCICLIB
     Dosage: 400 MG, QD
     Route: 048
  3. KISQALI [Suspect]
     Active Substance: RIBOCICLIB
     Dosage: UNK
     Route: 065
     Dates: start: 20240316, end: 20240513
  4. FUROSEMIDE [Concomitant]
     Active Substance: FUROSEMIDE
     Indication: Product used for unknown indication
     Dosage: UNK
     Route: 065
  5. IBUPROFEN [Concomitant]
     Active Substance: IBUPROFEN
     Indication: Product used for unknown indication
     Dosage: UNK
     Route: 065

REACTIONS (17)
  - Liver disorder [Recovered/Resolved]
  - Hepatic failure [Recovered/Resolved]
  - Cough [Recovered/Resolved]
  - Pericardial effusion [Recovered/Resolved]
  - Hydronephrosis [Recovered/Resolved]
  - Loss of consciousness [Recovered/Resolved]
  - Liver injury [Unknown]
  - Fatigue [Unknown]
  - Jaundice [Unknown]
  - Mental status changes [Unknown]
  - Blood test abnormal [Unknown]
  - Lethargy [Unknown]
  - Blood magnesium decreased [Unknown]
  - Vomiting [Not Recovered/Not Resolved]
  - Nausea [Recovering/Resolving]
  - Peripheral swelling [Recovered/Resolved]
  - Amnesia [Recovered/Resolved]

NARRATIVE: CASE EVENT DATE: 20240813
